FAERS Safety Report 5960075-5 (Version None)
Quarter: 2008Q4

REPORT INFORMATION
  Report Type: 
  Country: None (occurrence: None)
  Receive Date: 20081119
  Receipt Date: 20081119
  Transmission Date: 20090506
  Serious: Yes (Life-Threatening, Hospitalization)
  Sender: FDA-Public Use
  Company Number: None

PATIENT
  Age: 74 Year
  Sex: Female
  Weight: 70 kg

DRUGS (8)
  1. GLIMEPIRIDE [Suspect]
     Indication: TYPE 2 DIABETES MELLITUS
     Dosage: 4 MG PO QD
     Route: 048
  2. METFORMIN HCL [Suspect]
     Indication: TYPE 2 DIABETES MELLITUS
     Dosage: 500 MG PO BID
     Route: 048
  3. COLACE [Concomitant]
  4. LOPRESSOR [Concomitant]
  5. MORPHINE [Concomitant]
  6. SENNA [Concomitant]
  7. ZOFRAN [Concomitant]
  8. PREDNISONE TAB [Concomitant]

REACTIONS (8)
  - BLOOD GLUCOSE DECREASED [None]
  - EATING DISORDER [None]
  - FACIAL PALSY [None]
  - FLUSHING [None]
  - HYPOAESTHESIA [None]
  - PARAESTHESIA [None]
  - RENAL FAILURE ACUTE [None]
  - UNRESPONSIVE TO STIMULI [None]
